FAERS Safety Report 20740382 (Version 4)
Quarter: 2022Q2

REPORT INFORMATION
  Report Type: Spontaneous
  Country: US (occurrence: US)
  Receive Date: 20220422
  Receipt Date: 20220427
  Transmission Date: 20220721
  Serious: Yes (Other)
  Sender: FDA-Public Use
  Company Number: US-GILEAD-2022-0578576

PATIENT
  Sex: Male

DRUGS (1)
  1. DESCOVY [Suspect]
     Active Substance: EMTRICITABINE\TENOFOVIR ALAFENAMIDE FUMARATE
     Indication: Prophylaxis against HIV infection
     Dosage: 1 DOSAGE FORM, QD, MOST RECENT BOTTLE STARTED ON 08-APR-2022
     Route: 065

REACTIONS (9)
  - HIV infection [Unknown]
  - Pyrexia [Not Recovered/Not Resolved]
  - Night sweats [Not Recovered/Not Resolved]
  - Product use issue [Unknown]
  - Suspected counterfeit product [Recovered/Resolved]
  - Suspected product contamination [Recovered/Resolved]
  - Counterfeit product administered [Recovered/Resolved]
  - Anxiety [Unknown]
  - Product packaging issue [Recovered/Resolved]

NARRATIVE: CASE EVENT DATE: 20220401
